FAERS Safety Report 8573117-8 (Version None)
Quarter: 2012Q3

REPORT INFORMATION
  Report Type: 
  Country: None (occurrence: None)
  Receive Date: 20120806
  Receipt Date: 20120802
  Transmission Date: 20120928
  Serious: Yes (Hospitalization)
  Sender: FDA-Public Use
  Company Number: US-ACTELION-A-US2012-69646

PATIENT
  Age: 69 Year
  Sex: Female

DRUGS (6)
  1. COUMADIN [Concomitant]
  2. TRACLEER [Concomitant]
     Indication: PULMONARY ARTERIAL HYPERTENSION
     Dosage: UNK
     Route: 048
  3. LASIX [Concomitant]
  4. VENTAVIS [Suspect]
     Indication: PULMONARY ARTERIAL HYPERTENSION
     Dosage: UNK
     Route: 055
     Dates: start: 20101115
  5. ADCIRCA [Concomitant]
  6. ASPIRIN [Concomitant]

REACTIONS (2)
  - GASTROINTESTINAL DISORDER [None]
  - CHEST DISCOMFORT [None]
